FAERS Safety Report 20632293 (Version 1)
Quarter: 2022Q1

REPORT INFORMATION
  Report Type: Report from Study
  Country: BR (occurrence: BR)
  Receive Date: 20220324
  Receipt Date: 20220324
  Transmission Date: 20220423
  Serious: Yes (Death, Hospitalization)
  Sender: FDA-Public Use
  Company Number: BR-NOVARTISPH-NVSC2021BR194234

PATIENT
  Age: 62 Year
  Sex: Female

DRUGS (2)
  1. PIQRAY [Suspect]
     Active Substance: ALPELISIB
     Indication: Breast cancer
     Dosage: 300 MG, QD (2 TABLETS OF 150 MG)
     Route: 065
     Dates: start: 20210813
  2. DEXAMETHASONE [Concomitant]
     Active Substance: DEXAMETHASONE
     Indication: Product used for unknown indication
     Dosage: UNK
     Route: 065

REACTIONS (9)
  - Death [Fatal]
  - Urinary tract infection [Recovered/Resolved]
  - Decreased appetite [Recovering/Resolving]
  - Blood glucose increased [Recovered/Resolved]
  - Vomiting [Unknown]
  - Taste disorder [Unknown]
  - Thirst [Unknown]
  - Asthenia [Unknown]
  - Blood glucose abnormal [Unknown]

NARRATIVE: CASE EVENT DATE: 20210813
